FAERS Safety Report 8024596-6 (Version None)
Quarter: 2012Q1

REPORT INFORMATION
  Report Type: 
  Country: None (occurrence: None)
  Receive Date: 20120103
  Receipt Date: 20111216
  Transmission Date: 20120608
  Serious: Yes (Hospitalization)
  Sender: FDA-Public Use
  Company Number: 1000011010

PATIENT
  Age: 50 Year
  Sex: Female
  Weight: 70 kg

DRUGS (14)
  1. DERINOX (AMOXICILLIN TRIHYDRATE) [Suspect]
     Indication: NASAL CONGESTION
     Dosage: 3 DF (1 DOSAGE FORMS, 3 IN 1 D), NASAL
     Route: 045
     Dates: start: 20090119, end: 20090124
  2. PROPRANOLOL (PROPANOLOL) (CAPSULES) (PROPRANOLOL) [Concomitant]
  3. DEPAKOTE (VALPROATE SEMISODIUM) (TABLETS) (VALPROATE SEMISODIUM) [Concomitant]
  4. EUPHON (EUPHON) (SYRUP) (EUPHON) [Concomitant]
  5. TOPALGIC (TRAMADOL HYDROCHLORIDE) (TABLETS) (TRAMADOL HYDROCHLORIDE) [Concomitant]
  6. PREDNISOLONE AND NAPHAZOLINE (PREDNISOLONE, NAPHAZOLINE) (PREDNISOLONE [Concomitant]
  7. ESCITALOPRAM OXALATE [Suspect]
     Indication: DEPRESSION
     Dosage: 20 MG (20 MG, 1 IN 1 D), ORAL
     Route: 048
     Dates: start: 20090119, end: 20090124
  8. RELPAX [Suspect]
     Indication: MIGRAINE
     Dosage: (40 MG,AS REQUIRED), ORAL
     Route: 048
     Dates: end: 20090124
  9. CEFUROXIME [Concomitant]
  10. SERESTA (OXAZEPAM) (TABLETS) (OXAZEPAM) [Concomitant]
  11. HAVLANE (LOPRAZOLAM MESILATE) (TABLETS) (LOPRAZOLAM MESILATE) [Concomitant]
  12. SEROPRAM (CITALOPRAM) (TABLETS) (CITALOPRAM) [Concomitant]
  13. ANTADYS (FLURBIPROFEN) (100 MILLIGRAM, TABLETS) [Suspect]
     Indication: PAIN
     Dosage: (200 MG, 5 DAYS PER MONTH), ORAL
     Route: 048
     Dates: end: 20090124
  14. PARACETAMOL (PARACETAMOL) (CAPSULES) (PARACETAMOL) [Concomitant]

REACTIONS (3)
  - CEREBRAL HAEMATOMA [None]
  - CEREBROVASCULAR ACCIDENT [None]
  - CEREBRAL ARTERY STENOSIS [None]
